FAERS Safety Report 17830552 (Version 3)
Quarter: 2020Q3

REPORT INFORMATION
  Report Type: Spontaneous
  Country: US (occurrence: US)
  Receive Date: 20200527
  Receipt Date: 20200707
  Transmission Date: 20201103
  Serious: No
  Sender: FDA-Public Use
  Company Number: US-009507513-2005USA006333

PATIENT
  Age: 83 Year
  Sex: Female

DRUGS (1)
  1. JANUMET XR [Suspect]
     Active Substance: METFORMIN HYDROCHLORIDE\SITAGLIPTIN PHOSPHATE
     Indication: TYPE 2 DIABETES MELLITUS
     Dosage: 1 DOSAGE FORM, QD
     Route: 048

REACTIONS (14)
  - Dry skin [Not Recovered/Not Resolved]
  - Pain in extremity [Unknown]
  - Fall [Unknown]
  - Product label issue [Unknown]
  - Peripheral swelling [Not Recovered/Not Resolved]
  - Arthralgia [Unknown]
  - Confusional state [Unknown]
  - Vertigo [Unknown]
  - Bone contusion [Unknown]
  - Inappropriate schedule of product administration [Unknown]
  - Infection [Unknown]
  - Burning sensation [Unknown]
  - Skin tightness [Not Recovered/Not Resolved]
  - Arthropathy [Unknown]

NARRATIVE: CASE EVENT DATE: 202005
